FAERS Safety Report 6175406-3 (Version None)
Quarter: 2009Q2

REPORT INFORMATION
  Report Type: 
  Country: None (occurrence: None)
  Receive Date: 20090429
  Receipt Date: 20090415
  Transmission Date: 20091009
  Serious: Yes (Hospitalization)
  Sender: FDA-Public Use
  Company Number: QUU323637

PATIENT
  Sex: Female

DRUGS (1)
  1. KINERET [Suspect]
     Indication: RHEUMATOID ARTHRITIS
     Dosage: (100 MG SUBCUTANEOUS)
     Route: 058
     Dates: start: 20000714

REACTIONS (2)
  - ANAEMIA [None]
  - GASTROINTESTINAL ARTERIOVENOUS MALFORMATION [None]
